FAERS Safety Report 7741641-3 (Version None)
Quarter: 2011Q3

REPORT INFORMATION
  Report Type: 
  Country: None (occurrence: None)
  Receive Date: 20110911
  Receipt Date: 20110902
  Transmission Date: 20111222
  Serious: Yes (Death)
  Sender: FDA-Public Use
  Company Number: IT-CELGENEUS-083-21880-11090343

PATIENT
  Sex: Male

DRUGS (2)
  1. REVLIMID [Suspect]
     Indication: MYELOMA RECURRENCE
     Route: 048
     Dates: start: 20110621, end: 20110711
  2. DEXAMETHASONE [Concomitant]
     Route: 065

REACTIONS (1)
  - METASTATIC MALIGNANT MELANOMA [None]
